FAERS Safety Report 6251754-3 (Version None)
Quarter: 2009Q2

REPORT INFORMATION
  Report Type: 
  Country: None (occurrence: None)
  Receive Date: 20090630
  Receipt Date: 20090623
  Transmission Date: 20091009
  Serious: Yes (Hospitalization)
  Sender: FDA-Public Use
  Company Number: PHHY2009CN25186

PATIENT
  Age: 40 Year
  Sex: Female

DRUGS (9)
  1. CYCLOSPORINE [Suspect]
     Indication: RENAL TRANSPLANT
     Dosage: 8 MG/KG/DAY
  2. CYCLOSPORINE [Suspect]
     Indication: IMMUNOSUPPRESSION
  3. METHYLPREDNISOLONE [Suspect]
     Indication: RENAL TRANSPLANT
     Dosage: 440 MG, UNK
     Route: 042
  4. METHYLPREDNISOLONE [Suspect]
     Indication: IMMUNOSUPPRESSION
     Dosage: 360 MG, UNK
     Route: 042
  5. METHYLPREDNISOLONE [Suspect]
     Dosage: 200 MG, UNK
     Route: 042
  6. PREDNISOLONE [Suspect]
     Indication: RENAL TRANSPLANT
     Dosage: 10 MG, UNK
     Route: 048
  7. PREDNISOLONE [Suspect]
     Indication: IMMUNOSUPPRESSION
  8. MYCOPHENOLATE MOFETIL [Suspect]
     Indication: RENAL TRANSPLANT
     Dosage: 2 G/DAY
  9. MYCOPHENOLATE MOFETIL [Suspect]
     Indication: IMMUNOSUPPRESSION

REACTIONS (10)
  - ABDOMINAL PAIN [None]
  - ABDOMINAL PAIN LOWER [None]
  - ASPERGILLOSIS [None]
  - COMPLICATIONS OF TRANSPLANTED KIDNEY [None]
  - HYPOTENSION [None]
  - KIDNEY RUPTURE [None]
  - NEPHRECTOMY [None]
  - SURGERY [None]
  - VASCULAR PSEUDOANEURYSM [None]
  - VASCULAR STENT INSERTION [None]
